FAERS Safety Report 22540044 (Version 1)
Quarter: 2023Q2

REPORT INFORMATION
  Report Type: Spontaneous
  Country: CA (occurrence: CA)
  Receive Date: 20230609
  Receipt Date: 20230609
  Transmission Date: 20230722
  Serious: Yes (Hospitalization)
  Sender: FDA-Public Use
  Company Number: CA-ROCHE-3360216

PATIENT
  Age: 52 Year
  Sex: Female

DRUGS (31)
  1. CLONAZEPAM [Suspect]
     Active Substance: CLONAZEPAM
     Indication: Hypomania
     Dosage: DAILY DOSE: 3 MILLIGRAM
     Route: 048
  2. DIAZEPAM [Suspect]
     Active Substance: DIAZEPAM
     Indication: Depression
  3. DIAZEPAM [Suspect]
     Active Substance: DIAZEPAM
     Indication: Depression
     Dosage: DAILY DOSE: 1500 MILLIGRAM
  4. DIAZEPAM [Suspect]
     Active Substance: DIAZEPAM
     Indication: Depression
     Route: 048
  5. ACETAMINOPHEN [Suspect]
     Active Substance: ACETAMINOPHEN
     Indication: Pain in extremity
     Route: 048
  6. APTIVUS [Suspect]
     Active Substance: TIPRANAVIR
     Indication: HIV infection
     Dosage: DAILY DOSE: 500 MILLIGRAM
     Route: 048
  7. OLANZAPINE [Suspect]
     Active Substance: OLANZAPINE
     Dosage: DAILY DOSE: 12.5 MILLIGRAM
     Route: 048
  8. OLANZAPINE [Suspect]
     Active Substance: OLANZAPINE
     Dosage: DAILY DOSE: 5 MILLIGRAM
     Route: 048
  9. PROCYCLIDINE HYDROCHLORIDE [Suspect]
     Active Substance: PROCYCLIDINE HYDROCHLORIDE
     Indication: Musculoskeletal stiffness
     Dosage: DAILY DOSE: 2.5 MILLIGRAM
     Route: 048
  10. PROCYCLIDINE HYDROCHLORIDE [Suspect]
     Active Substance: PROCYCLIDINE HYDROCHLORIDE
     Indication: Prophylaxis
     Dosage: DAILY DOSE: 2.5 MILLIGRAM
     Route: 048
  11. QUETIAPINE FUMARATE [Suspect]
     Active Substance: QUETIAPINE FUMARATE
     Indication: Psychotic disorder
     Dosage: DAILY DOSE: 50 MILLIGRAM
  12. RISPERIDONE [Suspect]
     Active Substance: RISPERIDONE
     Indication: Psychotic disorder
     Dosage: DAILY DOSE: 3 MILLIGRAM
     Route: 048
  13. TEGRETOL [Suspect]
     Active Substance: CARBAMAZEPINE
     Indication: Hypomania
     Dosage: DAILY DOSE: 400 MILLIGRAM
  14. TRAZODONE [Suspect]
     Active Substance: TRAZODONE HYDROCHLORIDE
     Indication: Depression
     Dosage: DAILY DOSE: 50 MILLIGRAM
     Route: 048
  15. DIVALPROEX SODIUM [Suspect]
     Active Substance: DIVALPROEX SODIUM
     Indication: Product used for unknown indication
     Dosage: DAILY DOSE: 1500 MILLIGRAM
     Route: 048
  16. DIVALPROEX SODIUM [Suspect]
     Active Substance: DIVALPROEX SODIUM
     Indication: Product used for unknown indication
     Dosage: DAILY DOSE: 2500 MILLIGRAM
     Route: 048
  17. DIVALPROEX SODIUM [Suspect]
     Active Substance: DIVALPROEX SODIUM
     Indication: Product used for unknown indication
  18. LAMIVUDINE [Concomitant]
     Active Substance: LAMIVUDINE
  19. ABACAVIR [Concomitant]
     Active Substance: ABACAVIR
  20. Acetaminophen/diphenhydramine/phenylephrine [Concomitant]
  21. Atovaquone / Proguanil [Concomitant]
  22. BISACODYL [Concomitant]
     Active Substance: BISACODYL
  23. CALCIUM CARBONATE [Concomitant]
     Active Substance: CALCIUM CARBONATE
  24. CHLORAL HYDRATE [Concomitant]
     Active Substance: CHLORAL HYDRATE
  25. ENFUVIRTIDE [Concomitant]
     Active Substance: ENFUVIRTIDE
  26. IMODIUM [Concomitant]
     Active Substance: LOPERAMIDE HYDROCHLORIDE
  27. KALETRA [Concomitant]
     Active Substance: LOPINAVIR\RITONAVIR
  28. LACTULOSE [Concomitant]
     Active Substance: LACTULOSE
  29. LITHIUM [Concomitant]
     Active Substance: LITHIUM
  30. NYSTATIN [Concomitant]
     Active Substance: NYSTATIN
  31. SERTRALINE [Concomitant]
     Active Substance: SERTRALINE HYDROCHLORIDE

REACTIONS (6)
  - Cholelithiasis [Unknown]
  - Nausea [Unknown]
  - Pneumonia [Unknown]
  - Schizophrenia [Unknown]
  - Vomiting [Unknown]
  - Product use in unapproved indication [Unknown]
